FAERS Safety Report 5682793-9 (Version None)
Quarter: 2008Q1

REPORT INFORMATION
  Report Type: 
  Country: None (occurrence: None)
  Receive Date: 20080327
  Receipt Date: 20080327
  Transmission Date: 20080703
  Serious: No
  Sender: FDA-Public Use
  Company Number: None

PATIENT
  Age: 56 Year
  Sex: Female
  Weight: 72.5755 kg

DRUGS (1)
  1. HEP-LOCK [Suspect]
     Indication: INTRAVENOUS CATHETER MANAGEMENT
     Dosage: LAST USE WITHIN THE LAST 30 DAYS

REACTIONS (2)
  - MYALGIA [None]
  - PYREXIA [None]
